FAERS Safety Report 5023466-5 (Version None)
Quarter: 2006Q2

REPORT INFORMATION
  Report Type: 
  Country: None (occurrence: None)
  Receive Date: 20060612
  Receipt Date: 20051216
  Transmission Date: 20061013
  Serious: Yes (Other)
  Sender: FDA-Public Use
  Company Number: PHEH2005US13659

PATIENT
  Age: 60 Year
  Sex: Female

DRUGS (2)
  1. ZOMETA [Suspect]
     Indication: METASTASES TO BONE
     Dosage: 4 MG, UNK
     Dates: end: 20040604
  2. ZOMETA [Suspect]
     Dosage: 4 MG Q28D
     Dates: start: 20020401, end: 20031217

REACTIONS (23)
  - BLOOD CREATININE INCREASED [None]
  - BONE DISORDER [None]
  - BONE OPERATION [None]
  - BREATH ODOUR [None]
  - DENTAL CARIES [None]
  - DYSGEUSIA [None]
  - EXCESSIVE GRANULATION TISSUE [None]
  - FISTULA [None]
  - IMPAIRED HEALING [None]
  - MALIGNANT NEOPLASM PROGRESSION [None]
  - OEDEMA [None]
  - ORAL PAIN [None]
  - ORAL SOFT TISSUE DISORDER [None]
  - OSTEOMYELITIS [None]
  - OSTEONECROSIS [None]
  - PAIN [None]
  - PURULENT DISCHARGE [None]
  - SOFT TISSUE INFECTION [None]
  - SWELLING [None]
  - THERAPEUTIC PROCEDURE [None]
  - TOOTH EXTRACTION [None]
  - WOUND DEBRIDEMENT [None]
  - WOUND DEHISCENCE [None]
